FAERS Safety Report 10521997 (Version 1)
Quarter: 2014Q4

REPORT INFORMATION
  Report Type: Spontaneous
  Country: US (occurrence: None)
  Receive Date: 20141014
  Receipt Date: 20141014
  Transmission Date: 20150528
  Serious: No
  Sender: FDA-Public Use
  Company Number: None

PATIENT
  Age: 72 Year
  Sex: Male

DRUGS (14)
  1. DEXAMETHASONE. [Concomitant]
     Active Substance: DEXAMETHASONE
  2. HYDROCHLOROTHIAZIDE. [Concomitant]
     Active Substance: HYDROCHLOROTHIAZIDE
  3. LISINOPRIL. [Concomitant]
     Active Substance: LISINOPRIL
  4. VARDENAFIL [Concomitant]
     Active Substance: VARDENAFIL
  5. SULFAMETHOXAZOLE-TRIMETHOPRIM (SMZ) [Concomitant]
     Active Substance: SULFAMETHOXAZOLE\TRIMETHOPRIM
  6. OMEPRAZOLE. [Concomitant]
     Active Substance: OMEPRAZOLE
  7. SILDENAFIL. [Concomitant]
     Active Substance: SILDENAFIL
  8. ASPIRIN. [Concomitant]
     Active Substance: ASPIRIN
  9. METFORMIN [Concomitant]
     Active Substance: METFORMIN HYDROCHLORIDE
  10. ATORVASTATIN [Concomitant]
     Active Substance: ATORVASTATIN
  11. REVLIMID [Suspect]
     Active Substance: LENALIDOMIDE
     Indication: PLASMA CELL MYELOMA
     Dosage: 25MG, DAILY X21D/28D, ORALLY
     Route: 048
     Dates: start: 20140625, end: 201409
  12. FLUCONAZOLE. [Concomitant]
     Active Substance: FLUCONAZOLE
  13. NYSTATIN. [Concomitant]
     Active Substance: NYSTATIN
  14. RANITIDINE [Concomitant]
     Active Substance: RANITIDINE\RANITIDINE HYDROCHLORIDE

REACTIONS (2)
  - Dizziness [None]
  - Peripheral swelling [None]

NARRATIVE: CASE EVENT DATE: 201409
